FAERS Safety Report 7628556-6 (Version None)
Quarter: 2011Q3

REPORT INFORMATION
  Report Type: 
  Country: None (occurrence: None)
  Receive Date: 20110722
  Receipt Date: 20110718
  Transmission Date: 20111222
  Serious: Yes (Other)
  Sender: FDA-Public Use
  Company Number: GB-SANOFI-AVENTIS-2011SA036124

PATIENT
  Sex: Female
  Weight: 90 kg

DRUGS (5)
  1. AUTOPEN 24 [Suspect]
     Dates: end: 20110603
  2. NOVORAPID [Suspect]
     Indication: TYPE 1 DIABETES MELLITUS
  3. AUTOPEN 24 [Suspect]
  4. LANTUS [Suspect]
  5. LANTUS [Suspect]
     Dates: end: 20110603

REACTIONS (7)
  - WEIGHT DECREASED [None]
  - WEIGHT INCREASED [None]
  - HYPOGLYCAEMIA [None]
  - FLUID RETENTION [None]
  - BLOOD GLUCOSE FLUCTUATION [None]
  - DRUG INEFFECTIVE [None]
  - BLOOD GLUCOSE INCREASED [None]
